FAERS Safety Report 15752176 (Version 4)
Quarter: 2019Q3

REPORT INFORMATION
  Report Type: Report from Study
  Country: DE (occurrence: DE)
  Receive Date: 20181221
  Receipt Date: 20190927
  Transmission Date: 20191004
  Serious: Yes (Death, Life-Threatening, Hospitalization)
  Sender: FDA-Public Use
  Company Number: DE-JNJFOC-20181219162

PATIENT
  Age: 28 Year
  Sex: Male
  Weight: 66 kg

DRUGS (18)
  1. ZOPICLON [Concomitant]
     Active Substance: ZOPICLONE
     Route: 065
  2. HALODAL [Concomitant]
     Active Substance: HALOPERIDOL
  3. PARACETAMOL [Concomitant]
     Active Substance: ACETAMINOPHEN
     Route: 048
  4. STELARA [Suspect]
     Active Substance: USTEKINUMAB
     Indication: CROHN^S DISEASE
     Route: 058
     Dates: start: 20180921, end: 20181212
  5. PREDNISOLONE. [Concomitant]
     Active Substance: PREDNISOLONE
     Indication: CROHN^S DISEASE
     Route: 065
     Dates: start: 20181221, end: 20190105
  6. MONODRAL [Concomitant]
  7. FOLSAEURE [Concomitant]
     Active Substance: FOLIC ACID
  8. MEROPENEM. [Concomitant]
     Active Substance: MEROPENEM
     Route: 042
  9. MCP [Concomitant]
     Active Substance: METOCLOPRAMIDE HYDROCHLORIDE
     Route: 048
  10. NEUROCIL                           /00038602/ [Concomitant]
     Active Substance: LEVOMEPROMAZINE MALEATE
  11. LAXOBERAL [Concomitant]
     Active Substance: SODIUM PICOSULFATE
  12. STELARA [Suspect]
     Active Substance: USTEKINUMAB
     Route: 058
     Dates: start: 20181212
  13. PIRITRAMIDE [Concomitant]
     Active Substance: PIRITRAMIDE
  14. PENTAZOLE                          /00331401/ [Concomitant]
     Route: 042
  15. PROCRIT [Concomitant]
     Active Substance: ERYTHROPOIETIN
  16. HEPARIN [Concomitant]
     Active Substance: HEPARIN SODIUM
  17. VITAMIN D [Suspect]
     Active Substance: VITAMIN D NOS
     Indication: CROHN^S DISEASE
     Route: 065
  18. VOMEX A [Concomitant]
     Active Substance: DIMENHYDRINATE
     Route: 042

REACTIONS (6)
  - Pancreatitis [Unknown]
  - Paget-Schroetter syndrome [Not Recovered/Not Resolved]
  - Small intestine adenocarcinoma [Fatal]
  - Acute kidney injury [Unknown]
  - Klebsiella sepsis [Fatal]
  - Metastases to peritoneum [Fatal]

NARRATIVE: CASE EVENT DATE: 20181125
